FAERS Safety Report 9065215 (Version 1)
Quarter: 2013Q1

REPORT INFORMATION
  Report Type: Spontaneous
  Country: US (occurrence: US)
  Receive Date: 20130214
  Receipt Date: 20130214
  Transmission Date: 20140127
  Serious: No
  Sender: FDA-Public Use
  Company Number: US-PFIZER INC-2013056979

PATIENT
  Sex: Female

DRUGS (3)
  1. DOXAZOSIN MESILATE [Suspect]
     Dosage: UNK
  2. SYNTHROID [Concomitant]
     Dosage: UNK
     Route: 048
  3. ACIPHEX [Concomitant]
     Dosage: UNK
     Route: 048

REACTIONS (1)
  - Hypersensitivity [Unknown]
